FAERS Safety Report 8780120 (Version 1)
Quarter: 2012Q4

REPORT INFORMATION
  Report Type: Spontaneous
  Country: US (occurrence: None)
  Receive Date: 20120904
  Receipt Date: 20120904
  Transmission Date: 20130627
  Serious: Yes (Hospitalization)
  Sender: FDA-Public Use
  Company Number: None

PATIENT
  Age: 30 Year
  Sex: Female
  Weight: 108.9 kg

DRUGS (3)
  1. CARBOPLATIN [Suspect]
     Indication: ENDOMETRIAL CANCER
     Dosage: auc5
     Dates: start: 20120827, end: 20120827
  2. PACLITAXEL [Suspect]
     Indication: ENDOMETRIAL CANCER
     Dates: start: 20120827, end: 20120827
  3. RIDAFOROLIMUS [Suspect]
     Indication: ENDOMETRIAL CANCER
     Route: 048
     Dates: start: 20120827, end: 20120830

REACTIONS (5)
  - Nausea [None]
  - Vomiting [None]
  - Dehydration [None]
  - Blood potassium decreased [None]
  - Osteoarthritis [None]
